FAERS Safety Report 10167078 (Version 1)
Quarter: 2014Q2

REPORT INFORMATION
  Report Type: Spontaneous
  Country: US (occurrence: US)
  Receive Date: 20140512
  Receipt Date: 20140512
  Transmission Date: 20141212
  Serious: Yes (Disabling)
  Sender: FDA-Public Use
  Company Number: US-PFIZER INC-2014126384

PATIENT
  Sex: Female

DRUGS (1)
  1. NEURONTIN [Suspect]
     Indication: DIABETIC NEUROPATHY
     Dosage: 800 MG, 5X/DAY
     Route: 048

REACTIONS (3)
  - Back disorder [Unknown]
  - Impaired work ability [Unknown]
  - Drug ineffective [Unknown]
